FAERS Safety Report 9022537 (Version 1)
Quarter: 2013Q1

REPORT INFORMATION
  Report Type: Spontaneous
  Country: US (occurrence: US)
  Receive Date: 20130118
  Receipt Date: 20130118
  Transmission Date: 20140127
  Serious: Yes (Death)
  Sender: FDA-Public Use
  Company Number: US-GLAXOSMITHKLINE-A0961983A

PATIENT
  Age: 86 Year
  Sex: Male

DRUGS (12)
  1. PROMACTA [Suspect]
     Indication: IDIOPATHIC THROMBOCYTOPENIC PURPURA
     Dosage: 25MG PER DAY
     Route: 048
     Dates: start: 20120117
  2. PREDNISONE [Concomitant]
  3. ZOLOFT [Concomitant]
  4. NIFEDICAL XL [Concomitant]
  5. LISINOPRIL [Concomitant]
  6. SIMVASTATIN [Concomitant]
  7. B12 [Concomitant]
  8. CALCIUM [Concomitant]
  9. VITAMIN D [Concomitant]
  10. PRILOSEC [Concomitant]
  11. B-VITAMIN SUPPLEMENT [Concomitant]
  12. UNSPECIFIED MEDICATION [Concomitant]

REACTIONS (10)
  - Death [Fatal]
  - Movement disorder [Recovered/Resolved]
  - Coordination abnormal [Recovered/Resolved]
  - Gait disturbance [Recovered/Resolved]
  - Dizziness [Recovered/Resolved]
  - Fatigue [Not Recovered/Not Resolved]
  - Asthenia [Not Recovered/Not Resolved]
  - Adverse event [Not Recovered/Not Resolved]
  - Incorrect dosage administered [Unknown]
  - Platelet count decreased [Unknown]
